FAERS Safety Report 4735719-6 (Version None)
Quarter: 2005Q3

REPORT INFORMATION
  Report Type: 
  Country: None (occurrence: None)
  Receive Date: 20050802
  Receipt Date: 20050718
  Transmission Date: 20060218
  Serious: Yes (Other)
  Sender: FDA-Public Use
  Company Number: 8011091

PATIENT
  Age: 31 Year
  Sex: Male

DRUGS (1)
  1. HYDROCODONE BITARTRATE + ACETAMINOPHEN [Suspect]
     Dosage: NAS

REACTIONS (5)
  - CANDIDIASIS [None]
  - DRUG ABUSER [None]
  - FISTULA [None]
  - OPIATES POSITIVE [None]
  - SPEECH DISORDER [None]
